FAERS Safety Report 12576058 (Version 2)
Quarter: 2016Q3

REPORT INFORMATION
  Report Type: Spontaneous
  Country: DE (occurrence: DE)
  Receive Date: 20160720
  Receipt Date: 20160727
  Transmission Date: 20161109
  Serious: Yes (Life-Threatening)
  Sender: FDA-Public Use
  Company Number: DE-OTSUKA-2016_017413

PATIENT
  Age: 76 Year
  Sex: Female

DRUGS (3)
  1. SAMSCA [Suspect]
     Active Substance: TOLVAPTAN
     Dosage: 22.5 MG, QD (3X HALF 15 MG TABLET)
     Route: 048
  2. SAMSCA [Suspect]
     Active Substance: TOLVAPTAN
     Indication: HYPONATRAEMIA
     Dosage: 4XHALF 15MG /DAY(HALF 15MG IN MORNING,HALF 15MG AT NOON,HALF 15MG IN AFTERNOON,HALF 15MG BEFORE BED)
     Route: 048
  3. SAMSCA [Suspect]
     Active Substance: TOLVAPTAN
     Indication: INAPPROPRIATE ANTIDIURETIC HORMONE SECRETION
     Dosage: 7.5 MG, UNK
     Route: 065

REACTIONS (5)
  - Blood sodium decreased [Unknown]
  - Rapid correction of hyponatraemia [Unknown]
  - Off label use [Unknown]
  - Wrong technique in product usage process [Unknown]
  - Drug effect decreased [Unknown]
